FAERS Safety Report 6535211-2 (Version None)
Quarter: 2009Q4

REPORT INFORMATION
  Report Type: 
  Country: None (occurrence: None)
  Receive Date: 20091231
  Receipt Date: 20091215
  Transmission Date: 20100525
  Serious: Yes (Death, Life-Threatening)
  Sender: FDA-Public Use
  Company Number: APP200900863

PATIENT
  Age: 47 Year
  Sex: Male
  Weight: 122 kg

DRUGS (2)
  1. HEPARIN SODIUM INJECTION [Suspect]
     Indication: HAEMODIALYSIS
     Dosage: 12000 USP UNITS, 3 IN 1 WK, INTRAVENOUS
     Route: 042
  2. CHLORAPREP [Suspect]
     Indication: PREOPERATIVE CARE
     Dosage: 3 IN 1 WK, TOPICAL
     Route: 061

REACTIONS (6)
  - CARDIO-RESPIRATORY ARREST [None]
  - DYSPNOEA [None]
  - PARAESTHESIA [None]
  - PRURITUS [None]
  - THROAT TIGHTNESS [None]
  - VOMITING [None]
